FAERS Safety Report 26044043 (Version 1)
Quarter: 2025Q4

REPORT INFORMATION
  Report Type: Spontaneous
  Country: US (occurrence: US)
  Receive Date: 20251114
  Receipt Date: 20251114
  Transmission Date: 20260118
  Serious: No
  Sender: AMGEN
  Company Number: US-AMGEN-USASP2025222139

PATIENT
  Sex: Female

DRUGS (1)
  1. REPATHA [Suspect]
     Active Substance: EVOLOCUMAB
     Indication: Product used for unknown indication
     Dosage: 140 MILLIGRAM PER MILLILITRE, Q2WK
     Route: 065
     Dates: start: 20251024, end: 20251025

REACTIONS (1)
  - Vision blurred [Unknown]

NARRATIVE: CASE EVENT DATE: 20251107
